FAERS Safety Report 23540983 (Version 2)
Quarter: 2024Q2

REPORT INFORMATION
  Report Type: Spontaneous
  Country: US (occurrence: US)
  Receive Date: 20240219
  Receipt Date: 20240517
  Transmission Date: 20240716
  Serious: No
  Sender: FDA-Public Use
  Company Number: US-Stemline Therapeutics, Inc.-2024ST000497

PATIENT
  Age: 63 Year
  Sex: Female

DRUGS (2)
  1. ORSERDU [Suspect]
     Active Substance: ELACESTRANT
     Indication: Product used for unknown indication
     Dosage: 344 MG (4 TABLETS), ORAL, ONCE DAILY
     Route: 048
     Dates: start: 20231030
  2. VERZENIO [Concomitant]
     Active Substance: ABEMACICLIB
     Indication: Product used for unknown indication
     Dosage: NOT PROVIDED

REACTIONS (6)
  - Sciatica [Recovering/Resolving]
  - Adverse event [Unknown]
  - Fatigue [Recovering/Resolving]
  - Musculoskeletal chest pain [Unknown]
  - Myalgia [Unknown]
  - Nausea [Unknown]
